FAERS Safety Report 20291807 (Version 1)
Quarter: 2022Q1

REPORT INFORMATION
  Report Type: Report from Study
  Country: US (occurrence: US)
  Receive Date: 20220104
  Receipt Date: 20220104
  Transmission Date: 20220424
  Serious: Yes (Hospitalization)
  Sender: FDA-Public Use
  Company Number: US-CELGENE-USA-20211209697

PATIENT
  Sex: Female

DRUGS (2)
  1. THALOMID [Suspect]
     Active Substance: THALIDOMIDE
     Indication: Aphthous ulcer
     Route: 048
     Dates: start: 201902
  2. THALOMID [Suspect]
     Active Substance: THALIDOMIDE
     Indication: Off label use

REACTIONS (2)
  - Aphasia [Recovering/Resolving]
  - Sitting disability [Recovering/Resolving]
